FAERS Safety Report 23888753 (Version 1)
Quarter: 2024Q2

REPORT INFORMATION
  Report Type: Spontaneous
  Country: US (occurrence: US)
  Receive Date: 20240523
  Receipt Date: 20240523
  Transmission Date: 20240716
  Serious: Yes (Other)
  Sender: FDA-Public Use
  Company Number: US-SERVIER-S24005667

PATIENT

DRUGS (2)
  1. ASPARLAS [Suspect]
     Active Substance: CALASPARGASE PEGOL-MKNL
     Indication: B-cell type acute leukaemia
     Dosage: UNK
     Route: 042
  2. RYLAZE [Suspect]
     Active Substance: ASPARAGINASE ERWINIA CHRYSANTHEMI (RECOMBINANT)-RYWN
     Indication: B-cell type acute leukaemia
     Dosage: UNK
     Route: 042

REACTIONS (5)
  - Hypersensitivity [Recovered/Resolved]
  - Chemotherapeutic drug level below therapeutic [Unknown]
  - Hyperammonaemia [Recovered/Resolved]
  - Administration site reaction [Recovered/Resolved]
  - Enzyme inhibition [Unknown]

NARRATIVE: CASE EVENT DATE: 20240101
